FAERS Safety Report 10245029 (Version 2)
Quarter: 2014Q3

REPORT INFORMATION
  Report Type: Spontaneous
  Country: US (occurrence: US)
  Receive Date: 20140618
  Receipt Date: 20140912
  Transmission Date: 20150326
  Serious: No
  Sender: FDA-Public Use
  Company Number: US-GALDERMA-US14001676

PATIENT
  Age: 53 Year
  Sex: Female

DRUGS (14)
  1. APPLE CIDER VINEGAR DILUTED WITH WATER [Suspect]
     Active Substance: APPLE CIDER VINEGAR
     Indication: THERAPEUTIC SKIN CARE TOPICAL
     Route: 061
  2. MIRVASO [Suspect]
     Active Substance: BRIMONIDINE TARTRATE
     Indication: ROSACEA
     Dosage: 0.33%
     Route: 061
     Dates: start: 20140411, end: 20140503
  3. CLARITIN [Concomitant]
     Active Substance: LORATADINE
     Dosage: 10 MG
     Route: 048
  4. MARIO BADESCU CHAMOMILE NIGHT CREAM [Concomitant]
     Route: 061
     Dates: start: 201311
  5. ALOE TONER UNSPECIFIED [Concomitant]
     Indication: THERAPEUTIC SKIN CARE TOPICAL
     Route: 061
  6. MARIO BADESCU MOISTURIZER WITH SUNSCREEN SPF 30 [Concomitant]
     Dates: start: 201403
  7. ZANTAC [Concomitant]
     Active Substance: RANITIDINE HYDROCHLORIDE
     Dosage: 150 MG
     Route: 048
  8. BENADRYL [Concomitant]
     Active Substance: DIPHENHYDRAMINE HYDROCHLORIDE
     Dosage: 25 MG
     Route: 048
  9. LEVOXYL [Concomitant]
     Active Substance: LEVOTHYROXINE SODIUM
     Dosage: 0.1MG
     Route: 048
  10. METROGEL [Concomitant]
     Active Substance: METRONIDAZOLE
     Indication: ROSACEA
     Dosage: 1%
     Route: 061
  11. MIRVASO [Suspect]
     Active Substance: BRIMONIDINE TARTRATE
     Dosage: 0.33%
     Route: 061
     Dates: start: 20140503, end: 20140503
  12. CETAPHIL [Concomitant]
     Active Substance: AVOBENZONE\OCTOCRYLENE\TRICLOSAN
     Indication: THERAPEUTIC SKIN CARE TOPICAL
     Route: 061
  13. UNSPECIFIED GENTLE MOISTURIZER [Concomitant]
     Indication: DRY SKIN PROPHYLAXIS
     Route: 061
  14. GLO MINERAL POWDER [Concomitant]

REACTIONS (10)
  - Paraesthesia [Recovered/Resolved]
  - Skin tightness [Recovered/Resolved]
  - Skin warm [Recovered/Resolved]
  - Eye disorder [Recovered/Resolved]
  - Feeling hot [Recovered/Resolved]
  - Rash macular [Recovered/Resolved]
  - Rebound effect [Recovered/Resolved]
  - Erythema [Recovered/Resolved]
  - Condition aggravated [Recovered/Resolved]
  - Skin burning sensation [Recovered/Resolved]

NARRATIVE: CASE EVENT DATE: 20140430
